FAERS Safety Report 6418025-3 (Version None)
Quarter: 2009Q4

REPORT INFORMATION
  Report Type: 
  Country: None (occurrence: None)
  Receive Date: 20091028
  Receipt Date: 20091016
  Transmission Date: 20100525
  Serious: Yes (Other)
  Sender: FDA-Public Use
  Company Number: US-PFIZER INC-2009244126

PATIENT
  Sex: Male
  Weight: 105.67 kg

DRUGS (2)
  1. SUTENT [Suspect]
     Indication: METASTATIC RENAL CELL CARCINOMA
     Dosage: 50 MG, 1X/DAY
     Dates: start: 20090703
  2. TOPROL-XL [Concomitant]
     Dosage: UNK

REACTIONS (19)
  - BACK PAIN [None]
  - BLOOD PRESSURE DECREASED [None]
  - CONDITION AGGRAVATED [None]
  - DIARRHOEA [None]
  - DRUG INEFFECTIVE [None]
  - DYSGEUSIA [None]
  - DYSPNOEA [None]
  - DYSPNOEA EXERTIONAL [None]
  - FATIGUE [None]
  - GINGIVAL BLEEDING [None]
  - HEADACHE [None]
  - HEART RATE DECREASED [None]
  - MUSCULOSKELETAL STIFFNESS [None]
  - NAUSEA [None]
  - ODYNOPHAGIA [None]
  - ORAL PAIN [None]
  - PYREXIA [None]
  - RENAL IMPAIRMENT [None]
  - TONGUE ULCERATION [None]
